FAERS Safety Report 18151638 (Version 2)
Quarter: 2020Q3

REPORT INFORMATION
  Report Type: Spontaneous
  Country: US (occurrence: US)
  Receive Date: 20200814
  Receipt Date: 20200820
  Transmission Date: 20201103
  Serious: Yes (Hospitalization)
  Sender: FDA-Public Use
  Company Number: US-PFIZER INC-2019335375

PATIENT
  Age: 73 Year
  Sex: Male
  Weight: 73.03 kg

DRUGS (2)
  1. SUTENT [Suspect]
     Active Substance: SUNITINIB MALATE
     Indication: PANCREATIC NEUROENDOCRINE TUMOUR
     Dosage: 37.5 MG, CYCLIC (1 CAP ONCE A DAY FOR 2 WEEKS THEN STOP FOR 2 WEEKS)
     Route: 048
     Dates: start: 201907
  2. SUTENT [Suspect]
     Active Substance: SUNITINIB MALATE
     Indication: PROSTATE CANCER
     Dosage: 75 MG, CYCLIC (37.5 MG 2 DAILY FOR 2 WEEKS AND THEN 2 WEEKS OFF)
     Dates: start: 201111

REACTIONS (2)
  - Cardiac valve disease [Unknown]
  - Pleural effusion [Recovered/Resolved]

NARRATIVE: CASE EVENT DATE: 20200803
